FAERS Safety Report 23184000 (Version 2)
Quarter: 2023Q4

REPORT INFORMATION
  Report Type: Report from Study
  Country: US (occurrence: US)
  Receive Date: 20231115
  Receipt Date: 20231121
  Transmission Date: 20240110
  Serious: Yes (Other)
  Sender: FDA-Public Use
  Company Number: US-ABBVIE-5491143

PATIENT
  Sex: Male

DRUGS (2)
  1. HUMIRA [Suspect]
     Active Substance: ADALIMUMAB
     Indication: Product used for unknown indication
     Route: 058
     Dates: start: 20220401, end: 202208
  2. HUMIRA [Suspect]
     Active Substance: ADALIMUMAB
     Dosage: LAST ADMIN DATE: 2023
     Route: 058
     Dates: start: 202303

REACTIONS (5)
  - Arthropod bite [Unknown]
  - Wound abscess [Unknown]
  - Arthralgia [Not Recovered/Not Resolved]
  - Pain [Not Recovered/Not Resolved]
  - Fatigue [Unknown]

NARRATIVE: CASE EVENT DATE: 20220101
